FAERS Safety Report 18481858 (Version 9)
Quarter: 2022Q1

REPORT INFORMATION
  Report Type: Spontaneous
  Country: US (occurrence: US)
  Receive Date: 20201109
  Receipt Date: 20220121
  Transmission Date: 20220423
  Serious: No
  Sender: FDA-Public Use
  Company Number: US-PHARMING-PHAUS2020000408

PATIENT

DRUGS (5)
  1. RUCONEST [Suspect]
     Active Substance: HUMAN C1-ESTERASE INHIBITOR
     Indication: Hereditary angioedema
     Dosage: 3000 IU, TWICE WEEKLY
     Route: 042
     Dates: start: 20181030
  2. RUCONEST [Suspect]
     Active Substance: HUMAN C1-ESTERASE INHIBITOR
     Dosage: 3000 IU, TWICE WEEKLY
     Route: 042
     Dates: start: 20181030
  3. RUCONEST [Suspect]
     Active Substance: HUMAN C1-ESTERASE INHIBITOR
     Dosage: 3000 IU, TWICE WEEKLY
     Route: 042
     Dates: start: 20181030
  4. RUCONEST [Suspect]
     Active Substance: HUMAN C1-ESTERASE INHIBITOR
     Dosage: 3000 IU, TWICE WEEKLY
     Route: 042
     Dates: start: 20181030
  5. RUCONEST [Suspect]
     Active Substance: HUMAN C1-ESTERASE INHIBITOR
     Dosage: 3000 IU, TWICE WEEKLY
     Route: 042
     Dates: start: 20181030

REACTIONS (4)
  - Vascular access site complication [Unknown]
  - Migraine [Unknown]
  - Product dose omission issue [Unknown]
  - Intentional product use issue [Unknown]
